FAERS Safety Report 8390386-8 (Version None)
Quarter: 2012Q2

REPORT INFORMATION
  Report Type: 
  Country: None (occurrence: None)
  Receive Date: 20120529
  Receipt Date: 20120516
  Transmission Date: 20120825
  Serious: Yes (Hospitalization)
  Sender: FDA-Public Use
  Company Number: CA-JNJFOC-20120514175

PATIENT
  Sex: Female
  Weight: 83.8 kg

DRUGS (6)
  1. TOPIRAMATE [Concomitant]
     Route: 065
  2. DILAUDID [Concomitant]
     Route: 065
  3. CYMBALTA [Concomitant]
     Route: 065
  4. LYRICA [Concomitant]
     Route: 065
  5. REMICADE [Suspect]
     Indication: CROHN'S DISEASE
     Route: 042
     Dates: start: 20100422
  6. VALPROIC ACID [Concomitant]
     Route: 065

REACTIONS (4)
  - URINARY TRACT INFECTION [None]
  - NAUSEA [None]
  - ABDOMINAL PAIN [None]
  - VOMITING [None]
